FAERS Safety Report 19861067 (Version 1)
Quarter: 2021Q3

REPORT INFORMATION
  Report Type: Report from Study
  Country: NL (occurrence: NL)
  Receive Date: 20210920
  Receipt Date: 20210920
  Transmission Date: 20211014
  Serious: Yes (Death, Life-Threatening, Other)
  Sender: FDA-Public Use
  Company Number: NL-MYLANLABS-2021M1063034

PATIENT
  Sex: Female

DRUGS (4)
  1. VENETOCLAX. [Suspect]
     Active Substance: VENETOCLAX
     Indication: ACUTE MYELOID LEUKAEMIA RECURRENT
     Dosage: 200 MILLIGRAM
     Route: 048
     Dates: start: 20200918, end: 202011
  2. VENETOCLAX. [Suspect]
     Active Substance: VENETOCLAX
     Indication: ACUTE MYELOID LEUKAEMIA
     Dosage: UNK
  3. AZACITIDINE. [Suspect]
     Active Substance: AZACITIDINE
     Indication: ACUTE MYELOID LEUKAEMIA RECURRENT
     Dosage: 75 MILLIGRAM/SQ. METER (DAY 1 TO 7)
     Route: 065
     Dates: start: 20200918
  4. GILTERITINIB [Concomitant]
     Active Substance: GILTERITINIB
     Indication: PRODUCT USED FOR UNKNOWN INDICATION
     Dosage: UNK

REACTIONS (7)
  - General physical health deterioration [Fatal]
  - Agranulocytosis [Fatal]
  - Acute myeloid leukaemia [Fatal]
  - Neutropenia [Fatal]
  - Off label use [Recovered/Resolved]
  - Blast cell count increased [Fatal]
  - Malaise [Fatal]

NARRATIVE: CASE EVENT DATE: 2020
